APPROVED DRUG PRODUCT: ONDANSETRON HYDROCHLORIDE
Active Ingredient: ONDANSETRON HYDROCHLORIDE
Strength: EQ 4MG BASE/5ML
Dosage Form/Route: SOLUTION;ORAL
Application: A078127 | Product #001
Applicant: PHARMACEUTICAL ASSOCIATES INC
Approved: Jun 25, 2007 | RLD: No | RS: No | Type: DISCN